FAERS Safety Report 23975823 (Version 1)
Quarter: 2024Q2

REPORT INFORMATION
  Report Type: Spontaneous
  Country: GB (occurrence: GB)
  Receive Date: 20240614
  Receipt Date: 20240614
  Transmission Date: 20240715
  Serious: Yes (Life-Threatening)
  Sender: FDA-Public Use
  Company Number: GB-B.Braun Medical Inc.-2158104

PATIENT
  Sex: Male

DRUGS (16)
  1. SODIUM CHLORIDE [Suspect]
     Active Substance: SODIUM CHLORIDE
  2. HERBALS [Suspect]
     Active Substance: HERBALS
  3. HERBALS [Suspect]
     Active Substance: HERBALS
  4. HERBALS [Suspect]
     Active Substance: HERBALS
  5. HERBALS [Suspect]
     Active Substance: HERBALS
  6. HERBALS [Suspect]
     Active Substance: HERBALS
  7. HERBALS [Suspect]
     Active Substance: HERBALS
  8. HERBALS [Suspect]
     Active Substance: HERBALS
  9. HERBALS [Suspect]
     Active Substance: HERBALS
  10. HERBALS [Suspect]
     Active Substance: HERBALS
  11. HERBALS [Suspect]
     Active Substance: HERBALS
  12. HERBALS [Suspect]
     Active Substance: HERBALS
  13. HERBALS [Suspect]
     Active Substance: HERBALS
  14. HERBALS [Suspect]
     Active Substance: HERBALS
  15. GINGER [Suspect]
     Active Substance: GINGER
  16. HERBALS [Suspect]
     Active Substance: HERBALS

REACTIONS (2)
  - Gastroenteritis viral [Unknown]
  - Medication error [Unknown]
